FAERS Safety Report 10768609 (Version 3)
Quarter: 2016Q3

REPORT INFORMATION
  Report Type: Report from Study
  Country: US (occurrence: US)
  Receive Date: 20150206
  Receipt Date: 20160714
  Transmission Date: 20161109
  Serious: Yes (Hospitalization, Other)
  Sender: FDA-Public Use
  Company Number: US-009507513-1502USA000417

PATIENT
  Age: 57 Year
  Sex: Female
  Weight: 75 kg

DRUGS (11)
  1. CLONIDINE. [Concomitant]
     Active Substance: CLONIDINE
     Indication: HYPERTENSION
     Dosage: UNK
     Dates: start: 201111
  2. HIBICLENS [Concomitant]
     Active Substance: CHLORHEXIDINE GLUCONATE
     Indication: PROPHYLAXIS
     Dosage: FORMULATION: SOLUTION (EXCEPT SYRUP)
     Dates: start: 20141118
  3. SYNTHROID [Concomitant]
     Active Substance: LEVOTHYROXINE SODIUM
     Indication: HYPOTHYROIDISM
     Dosage: UNK
     Dates: start: 1997
  4. ASPIRIN. [Concomitant]
     Active Substance: ASPIRIN
     Indication: PAIN
     Dosage: FORMULATION: UNKNOWN
     Dates: start: 200609
  5. KETOCONAZOLE. [Concomitant]
     Active Substance: KETOCONAZOLE
     Indication: PROPHYLAXIS
     Dosage: UNK
     Dates: start: 20141118
  6. SILVADENE [Concomitant]
     Active Substance: SILVER SULFADIAZINE
     Indication: PROPHYLAXIS
     Dosage: UNK
     Dates: start: 20141118
  7. ZOLINZA [Suspect]
     Active Substance: VORINOSTAT
     Indication: T-CELL LYMPHOMA
     Dosage: 400 MG, QD
     Route: 048
     Dates: start: 20141222, end: 20150119
  8. GABAPENTIN. [Concomitant]
     Active Substance: GABAPENTIN
     Indication: NEUROPATHY PERIPHERAL
     Dosage: UNK
     Dates: start: 2012
  9. ACYCLOVIR. [Concomitant]
     Active Substance: ACYCLOVIR
     Indication: PROPHYLAXIS
     Dosage: UNK
     Dates: start: 20141118
  10. METOPROLOL. [Concomitant]
     Active Substance: METOPROLOL
     Indication: HYPERTENSION
     Dosage: UNK
     Dates: start: 2011
  11. COZAAR [Concomitant]
     Active Substance: LOSARTAN POTASSIUM
     Indication: HYPERTENSION
     Dosage: FORMULATION: UNKNON
     Route: 048
     Dates: start: 2013

REACTIONS (1)
  - Pulmonary embolism [Recovered/Resolved]

NARRATIVE: CASE EVENT DATE: 20150120
